FAERS Safety Report 9301315 (Version 3)
Quarter: 2015Q3

REPORT INFORMATION
  Report Type: Report from Study
  Country: BE (occurrence: BE)
  Receive Date: 20130521
  Receipt Date: 20150924
  Transmission Date: 20151125
  Serious: Yes (Hospitalization)
  Sender: FDA-Public Use
  Company Number: BE-GLAXOSMITHKLINE-Z0018008C

PATIENT
  Age: 79 Year
  Sex: Female
  Weight: 66 kg

DRUGS (4)
  1. OFATUMUMAB [Suspect]
     Active Substance: OFATUMUMAB
     Indication: NON-HODGKIN^S LYMPHOMA
     Dosage: 1000 MG, CYC
     Route: 042
     Dates: start: 20121107, end: 20130612
  2. ENTEROL (FURAZOLIDONE) [Concomitant]
     Indication: GASTROENTERITIS
     Dosage: 250 MG, QID
     Route: 048
     Dates: start: 20130403, end: 20130510
  3. BENDAMUSTINE [Suspect]
     Active Substance: BENDAMUSTINE
     Indication: NON-HODGKIN^S LYMPHOMA
     Dosage: 90 MG/M2, CYC
     Route: 042
     Dates: start: 20121107, end: 20130411
  4. LOPERAMIDE [Concomitant]
     Active Substance: LOPERAMIDE
     Indication: GASTROENTERITIS
     Route: 048
     Dates: start: 20130515, end: 20130518

REACTIONS (1)
  - Gastroenteritis [Recovered/Resolved]

NARRATIVE: CASE EVENT DATE: 20130513
